FAERS Safety Report 10783659 (Version 6)
Quarter: 2016Q2

REPORT INFORMATION
  Report Type: Report from Study
  Country: JP (occurrence: JP)
  Receive Date: 20150210
  Receipt Date: 20160422
  Transmission Date: 20160815
  Serious: Yes (Other)
  Sender: FDA-Public Use
  Company Number: PHJP2015JP001506

PATIENT
  Age: 42 Year
  Sex: Female
  Weight: 62 kg

DRUGS (17)
  1. PROPETO [Concomitant]
     Indication: DRY SKIN PROPHYLAXIS
     Dosage: UNK, PRN
     Route: 061
     Dates: start: 20110120
  2. SAWACILLIN [Concomitant]
     Active Substance: AMOXICILLIN
     Indication: PHARYNGITIS
     Dosage: 250 MG, PRN
     Route: 048
     Dates: start: 20100415
  3. AZUNOL//SODIUM GUALENATE [Concomitant]
     Indication: PHARYNGITIS
     Dosage: UNK, PRN
     Route: 049
     Dates: start: 20120405
  4. ACUATIM [Concomitant]
     Active Substance: NADIFLOXACIN
     Indication: WOUND
     Dosage: UNK, PRN
     Route: 061
     Dates: start: 20120531
  5. ALLELOCK [Concomitant]
     Active Substance: OLOPATADINE HYDROCHLORIDE
     Indication: PRURITUS
     Dosage: 5 MG, PRN
     Route: 048
     Dates: start: 20110922
  6. CINAL [Concomitant]
     Active Substance: ASCORBIC ACID\CALCIUM PANTOTHENATE
     Indication: CHLOASMA
     Dosage: 200 G, PRN
     Route: 048
     Dates: start: 20101019
  7. VITAMEDIN                          /00176001/ [Concomitant]
     Indication: PHARYNGITIS
     Dosage: 1 DF, PRN
     Route: 048
     Dates: start: 20121212
  8. TRANSAMIN [Concomitant]
     Active Substance: TRANEXAMIC ACID
     Indication: CHLOASMA
     Dosage: 250 MG, PRN
     Route: 048
     Dates: start: 20110630
  9. KAKKONTO                           /07985901/ [Concomitant]
     Indication: MUSCULOSKELETAL STIFFNESS
     Dosage: 2.5 G, PRN
     Route: 048
     Dates: start: 20130704
  10. LOXONIN [Concomitant]
     Active Substance: LOXOPROFEN SODIUM
     Indication: PSORIATIC ARTHROPATHY
     Dosage: UNK, PRN
     Route: 061
     Dates: start: 20130903
  11. AIN457 [Suspect]
     Active Substance: SECUKINUMAB
     Indication: PSORIASIS
     Dosage: DOSE BLINDED
     Route: 058
     Dates: start: 20130121, end: 20141209
  12. LOXOPROFEN [Concomitant]
     Active Substance: LOXOPROFEN
     Indication: PSORIATIC ARTHROPATHY
     Dosage: 60 MG, PRN
     Route: 048
     Dates: start: 20140524
  13. AIN457 [Suspect]
     Active Substance: SECUKINUMAB
     Dosage: DOSE BLINDED
     Route: 058
     Dates: start: 20150106
  14. MYSLEE [Concomitant]
     Active Substance: ZOLPIDEM TARTRATE
     Indication: INSOMNIA
     Dosage: 5 MG, PRN
     Route: 048
     Dates: start: 20080405
  15. GASTER [Concomitant]
     Active Substance: FAMOTIDINE
     Indication: GASTRITIS PROPHYLAXIS
     Dosage: 20 MG, PRN
     Route: 048
     Dates: start: 20110630
  16. MUCODYNE [Concomitant]
     Active Substance: CARBOCYSTEINE
     Indication: PHARYNGITIS
     Dosage: 500 MG, PRN
     Route: 048
     Dates: start: 20130704
  17. CLEANAL [Concomitant]
     Active Substance: FUDOSTEINE
     Indication: PHARYNGITIS
     Dosage: 200 MG, PRN
     Route: 048
     Dates: start: 20130704

REACTIONS (1)
  - Cervical dysplasia [Recovering/Resolving]

NARRATIVE: CASE EVENT DATE: 20121018
